FAERS Safety Report 15573275 (Version 1)
Quarter: 2018Q4

REPORT INFORMATION
  Report Type: Report from Study
  Country: CN (occurrence: CN)
  Receive Date: 20181101
  Receipt Date: 20181101
  Transmission Date: 20190205
  Serious: Yes (Other)
  Sender: FDA-Public Use
  Company Number: CN-ROCHE-2205916

PATIENT

DRUGS (3)
  1. PACLITAXEL. [Suspect]
     Active Substance: PACLITAXEL
     Indication: METASTATIC GASTRIC CANCER
     Dosage: 135-175 MG/M2, DAY 1-14,  EVERY 21 DAYS A CYCLE
     Route: 041
  2. CAPECITABINE. [Suspect]
     Active Substance: CAPECITABINE
     Indication: METASTATIC GASTRIC CANCER
     Dosage: 30MIN AFTER MEAL IN THE MORNING AND EVENING, DAY 1-14,  EVERY 21 DAYS A CYCLE
     Route: 048
  3. ENDOSTATIN [Suspect]
     Active Substance: ENDOSTATIN
     Indication: METASTATIC GASTRIC CANCER
     Dosage: ON D1-D14, EVERY 21 DAYS A CYCLE
     Route: 041

REACTIONS (5)
  - Nausea [Unknown]
  - Alopecia [Unknown]
  - Palmar-plantar erythrodysaesthesia syndrome [Unknown]
  - Vomiting [Unknown]
  - Arrhythmia [Unknown]
